FAERS Safety Report 5487515-2 (Version None)
Quarter: 2007Q4

REPORT INFORMATION
  Report Type: 
  Country: None (occurrence: None)
  Receive Date: 20071015
  Receipt Date: 20070928
  Transmission Date: 20080405
  Serious: Yes (Death, Hospitalization, Other)
  Sender: FDA-Public Use
  Company Number: 2007001769

PATIENT
  Age: 51 Year
  Sex: Male

DRUGS (3)
  1. TARCEVA [Suspect]
     Indication: NON-SMALL CELL LUNG CANCER METASTATIC
     Dosage: (QD), ORAL
     Route: 048
     Dates: start: 20070514, end: 20070712
  2. HYDROCORTISONE SODIUM SUCCINATE [Concomitant]
  3. DOPAMINE HCL [Suspect]
     Dates: start: 20070806, end: 20070821

REACTIONS (5)
  - ACUTE RESPIRATORY DISTRESS SYNDROME [None]
  - CARDIAC FAILURE [None]
  - OEDEMA DUE TO CARDIAC DISEASE [None]
  - PERICARDIAL EFFUSION [None]
  - PULMONARY OEDEMA [None]
